FAERS Safety Report 23383952 (Version 1)
Quarter: 2024Q1

REPORT INFORMATION
  Report Type: Spontaneous
  Country: US (occurrence: US)
  Receive Date: 20240109
  Receipt Date: 20240109
  Transmission Date: 20240410
  Serious: Yes (Hospitalization, Other)
  Sender: FDA-Public Use
  Company Number: US-MYLANLABS-2023M1138949

PATIENT

DRUGS (1)
  1. GABAPENTIN [Suspect]
     Active Substance: GABAPENTIN
     Indication: Anxiety disorder
     Dosage: UNK
     Route: 065

REACTIONS (9)
  - Gallbladder enlargement [Unknown]
  - Anal abscess [Unknown]
  - Fistula [Unknown]
  - Sepsis [Unknown]
  - Gastrointestinal disorder [Unknown]
  - Faeces hard [Unknown]
  - Near death experience [Unknown]
  - Necrotising fasciitis [Unknown]
  - Off label use [Unknown]
